FAERS Safety Report 5330225-2 (Version None)
Quarter: 2007Q2

REPORT INFORMATION
  Report Type: 
  Country: None (occurrence: None)
  Receive Date: 20070521
  Receipt Date: 20070508
  Transmission Date: 20071010
  Serious: Yes (Hospitalization)
  Sender: FDA-Public Use
  Company Number: DE-ELI_LILLY_AND_COMPANY-DE200705002191

PATIENT
  Age: 13 Year
  Sex: Male

DRUGS (2)
  1. STRATTERA [Suspect]
     Indication: ATTENTION DEFICIT/HYPERACTIVITY DISORDER
     Dosage: 60 MG, DAILY (1/D)
     Route: 048
     Dates: start: 20061102, end: 20070501
  2. MEDIKINET [Concomitant]
     Dosage: 30 MG, UNK
     Route: 048

REACTIONS (8)
  - ABDOMINAL PAIN UPPER [None]
  - ALCOHOLISM [None]
  - DIZZINESS [None]
  - HEADACHE [None]
  - INTENTIONAL OVERDOSE [None]
  - PALLOR [None]
  - PUPILLARY DISORDER [None]
  - SUICIDAL IDEATION [None]
